FAERS Safety Report 17197448 (Version 6)
Quarter: 2020Q4

REPORT INFORMATION
  Report Type: Report from Study
  Country: None (occurrence: US)
  Receive Date: 20191224
  Receipt Date: 20201113
  Transmission Date: 20210113
  Serious: Yes (Other)
  Sender: FDA-Public Use
  Company Number: US-ABBVIE-19K-163-3153470-00

PATIENT
  Age: 70 Year
  Sex: Male

DRUGS (7)
  1. IMBRUVICA [Suspect]
     Active Substance: IBRUTINIB
     Route: 048
     Dates: start: 20190712
  2. IMBRUVICA [Suspect]
     Active Substance: IBRUTINIB
     Route: 048
  3. XARELTO [Concomitant]
     Active Substance: RIVAROXABAN
     Indication: THROMBOSIS
  4. XARELTO [Concomitant]
     Active Substance: RIVAROXABAN
     Indication: SWELLING
  5. IMBRUVICA [Suspect]
     Active Substance: IBRUTINIB
     Indication: CHRONIC LYMPHOCYTIC LEUKAEMIA
     Route: 048
     Dates: start: 20190712
  6. IMBRUVICA [Suspect]
     Active Substance: IBRUTINIB
     Route: 048
     Dates: start: 20190710
  7. IMBRUVICA [Suspect]
     Active Substance: IBRUTINIB
     Route: 048
     Dates: start: 20190712

REACTIONS (26)
  - Weight abnormal [Unknown]
  - Fatigue [Unknown]
  - Oedema [Unknown]
  - Incorrect dosage administered [Unknown]
  - Peripheral swelling [Not Recovered/Not Resolved]
  - Gait disturbance [Unknown]
  - Abdominal pain upper [Unknown]
  - Thrombosis [Unknown]
  - Stress [Unknown]
  - Weight decreased [Unknown]
  - Arthralgia [Recovered/Resolved]
  - Red blood cell count decreased [Recovering/Resolving]
  - Upper respiratory tract infection [Unknown]
  - Bone pain [Not Recovered/Not Resolved]
  - Gastrointestinal motility disorder [Unknown]
  - Renal impairment [Unknown]
  - Pain [Unknown]
  - Deep vein thrombosis [Recovering/Resolving]
  - Blood sodium decreased [Unknown]
  - Bone swelling [Not Recovered/Not Resolved]
  - Renal mass [Unknown]
  - Oedema peripheral [Unknown]
  - White blood cell count increased [Recovering/Resolving]
  - Anaemia [Unknown]
  - Myalgia [Not Recovered/Not Resolved]
  - Asthenia [Unknown]

NARRATIVE: CASE EVENT DATE: 201907
